FAERS Safety Report 17083740 (Version 2)
Quarter: 2020Q1

REPORT INFORMATION
  Report Type: Report from Study
  Country: US (occurrence: US)
  Receive Date: 20191127
  Receipt Date: 20200219
  Transmission Date: 20200409
  Serious: No
  Sender: FDA-Public Use
  Company Number: US-JNJFOC-20191134871

PATIENT
  Age: 65 Year
  Sex: Male

DRUGS (13)
  1. SPRAVATO [Suspect]
     Active Substance: ESKETAMINE
     Indication: DEPRESSION
     Dates: start: 20190822
  2. DIPHENHYDRAMINE. [Concomitant]
     Active Substance: DIPHENHYDRAMINE
     Indication: INSOMNIA
     Dates: start: 200303
  3. CLONAZEPAM. [Concomitant]
     Active Substance: CLONAZEPAM
     Indication: ANXIETY
  4. ROSUVASTATIN. [Concomitant]
     Active Substance: ROSUVASTATIN
     Indication: HYPERLIPIDAEMIA
  5. CITALOPRAM [Concomitant]
     Active Substance: CITALOPRAM HYDROBROMIDE
     Indication: MAJOR DEPRESSION
     Dates: start: 200703
  6. OLANZAPINE. [Concomitant]
     Active Substance: OLANZAPINE
     Indication: MAJOR DEPRESSION
     Dates: start: 200110
  7. LOSARTAN. [Concomitant]
     Active Substance: LOSARTAN
     Indication: HYPERTENSION
  8. AMLODIPINE [Concomitant]
     Active Substance: AMLODIPINE BESYLATE
     Indication: HYPERTENSION
  9. DESIPRAMINE [Concomitant]
     Active Substance: DESIPRAMINE
     Indication: MAJOR DEPRESSION
     Dates: start: 200105
  10. DESIPRAMINE [Concomitant]
     Active Substance: DESIPRAMINE
     Indication: POST-TRAUMATIC STRESS DISORDER
  11. CITALOPRAM [Concomitant]
     Active Substance: CITALOPRAM HYDROBROMIDE
     Indication: POST-TRAUMATIC STRESS DISORDER
  12. OLANZAPINE. [Concomitant]
     Active Substance: OLANZAPINE
     Indication: POST-TRAUMATIC STRESS DISORDER
  13. CLONAZEPAM. [Concomitant]
     Active Substance: CLONAZEPAM
     Indication: POST-TRAUMATIC STRESS DISORDER
     Dates: start: 200105

REACTIONS (4)
  - Nausea [Recovered/Resolved]
  - Dizziness [Recovered/Resolved]
  - Sedation [Recovered/Resolved]
  - Dissociation [Recovered/Resolved]

NARRATIVE: CASE EVENT DATE: 20191119
